FAERS Safety Report 23933312 (Version 1)
Quarter: 2024Q2

REPORT INFORMATION
  Report Type: Other
  Country: AU (occurrence: AU)
  Receive Date: 20240603
  Receipt Date: 20240603
  Transmission Date: 20240716
  Serious: Yes (Other)
  Sender: FDA-Public Use
  Company Number: AU-002147023-NVSC2024AU108740

PATIENT
  Sex: Female

DRUGS (1)
  1. OMALIZUMAB [Suspect]
     Active Substance: OMALIZUMAB
     Indication: Anaphylactic reaction
     Dosage: 300 MG, EVERY 6 WEEKS
     Route: 065
     Dates: start: 20191121

REACTIONS (2)
  - Anaphylactic reaction [Unknown]
  - Disease recurrence [Unknown]
